FAERS Safety Report 10537558 (Version 1)
Quarter: 2014Q4

REPORT INFORMATION
  Report Type: Spontaneous
  Country: US (occurrence: None)
  Receive Date: 20141022
  Receipt Date: 20141022
  Transmission Date: 20150529
  Serious: No
  Sender: FDA-Public Use
  Company Number: None

PATIENT
  Age: 25 Year
  Sex: Female

DRUGS (1)
  1. HUMIRA [Suspect]
     Active Substance: ADALIMUMAB
     Indication: CROHN^S DISEASE
     Dosage: 40 MG EVERY TWO WEEKS SUBCUTANEOUSLY
     Route: 058
     Dates: start: 20131108

REACTIONS (1)
  - Chest pain [None]

NARRATIVE: CASE EVENT DATE: 20141017
